FAERS Safety Report 11533436 (Version 1)
Quarter: 2015Q3

REPORT INFORMATION
  Report Type: Spontaneous
  Country: GB (occurrence: GB)
  Receive Date: 20150921
  Receipt Date: 20150921
  Transmission Date: 20151125
  Serious: Yes (Hospitalization, Other)
  Sender: FDA-Public Use
  Company Number: GB-GLAXOSMITHKLINE-GB2014009915

PATIENT

DRUGS (5)
  1. AMITRIPTYLINE [Concomitant]
     Active Substance: AMITRIPTYLINE
  2. ACICLOVIR [Suspect]
     Active Substance: ACYCLOVIR
     Indication: HERPES ZOSTER
     Dates: start: 20140903
  3. OXYCODONE [Concomitant]
     Active Substance: OXYCODONE
  4. CYCLIZINE [Suspect]
     Active Substance: CYCLIZINE
     Indication: NAUSEA
     Dosage: 50MG THREE TIMES A DAY FOR 5 DAYS THEN REDUCED TO 25MG THREE TIMES A DAY.
     Route: 048
     Dates: start: 20140903, end: 20140907
  5. CYCLIZINE [Suspect]
     Active Substance: CYCLIZINE
     Dosage: 25 MG, TID
     Route: 048
     Dates: start: 20140908, end: 20140910

REACTIONS (2)
  - Akinesia [Recovered/Resolved]
  - Myoclonus [Recovered/Resolved]

NARRATIVE: CASE EVENT DATE: 20140906
